FAERS Safety Report 6191861-7 (Version None)
Quarter: 2009Q2

REPORT INFORMATION
  Report Type: 
  Country: None (occurrence: None)
  Receive Date: 20090515
  Receipt Date: 20090319
  Transmission Date: 20091009
  Serious: No
  Sender: FDA-Public Use
  Company Number: US-BAYER-200910894BCC

PATIENT
  Age: 78 Year
  Sex: Female
  Weight: 64 kg

DRUGS (5)
  1. ALEVE (CAPLET) [Suspect]
     Indication: BACK PAIN
     Dosage: TOTAL DAILY DOSE: 440 MG  UNIT DOSE: 220 MG
     Route: 048
     Dates: start: 20090318
  2. LOW DOSE XANAX [Concomitant]
     Indication: DRUG USE FOR UNKNOWN INDICATION
  3. LOW DOSE STATIN [Concomitant]
     Indication: DRUG USE FOR UNKNOWN INDICATION
  4. CHEWABLE BAYER ASPIRIN [Concomitant]
     Indication: DRUG USE FOR UNKNOWN INDICATION
  5. WALGREENS BRAND ASPIRIN [Concomitant]
     Indication: DRUG USE FOR UNKNOWN INDICATION

REACTIONS (1)
  - URTICARIA [None]
